FAERS Safety Report 5631847-1 (Version None)
Quarter: 2008Q1

REPORT INFORMATION
  Report Type: 
  Country: None (occurrence: None)
  Receive Date: 20080220
  Receipt Date: 20080215
  Transmission Date: 20080703
  Serious: Yes (Other)
  Sender: FDA-Public Use
  Company Number: GB-WYE-G00925708

PATIENT
  Sex: Female

DRUGS (3)
  1. VENLAFAXINE HYDROCHLORIDE [Suspect]
     Indication: DEPRESSION
     Route: 048
     Dates: start: 20071015, end: 20080201
  2. VENLAFAXINE HYDROCHLORIDE [Suspect]
     Dosage: UNKNOWN
     Route: 048
     Dates: start: 20080201
  3. MULTIVITAMINS, COMBINATIONS [Concomitant]
     Dosage: UNKNOWN

REACTIONS (5)
  - HAEMORRHAGIC DIATHESIS [None]
  - HEADACHE [None]
  - PEPTIC ULCER HAEMORRHAGE [None]
  - RASH [None]
  - RECTAL HAEMORRHAGE [None]
